FAERS Safety Report 4919989-7 (Version None)
Quarter: 2006Q1

REPORT INFORMATION
  Report Type: 
  Country: None (occurrence: None)
  Receive Date: 20060216
  Receipt Date: 20060202
  Transmission Date: 20060701
  Serious: Yes (Other)
  Sender: FDA-Public Use
  Company Number: 2005-02444

PATIENT
  Age: 54 Year
  Sex: Male
  Weight: 67.6 kg

DRUGS (6)
  1. VELCADE [Suspect]
     Indication: MULTIPLE MYELOMA
     Dosage: 2.17 MG, INTRAVENOUS
     Route: 042
     Dates: start: 20051031, end: 20051121
  2. ALENDRONATE SODIUM [Concomitant]
  3. FAMOTIDINE [Concomitant]
  4. ALLOPURINOL [Concomitant]
  5. ZOLPIDEM TARTRATE [Concomitant]
  6. NOVAMIN (PROCHLOPERAZINE) [Concomitant]

REACTIONS (2)
  - INTERSTITIAL LUNG DISEASE [None]
  - PNEUMONITIS [None]
